FAERS Safety Report 7342695-9 (Version None)
Quarter: 2011Q1

REPORT INFORMATION
  Report Type: 
  Country: None (occurrence: None)
  Receive Date: 20110310
  Receipt Date: 20110302
  Transmission Date: 20110831
  Serious: Yes (Other)
  Sender: FDA-Public Use
  Company Number: US-PFIZER INC-2011046941

PATIENT
  Sex: Male

DRUGS (2)
  1. CLONAZEPAM [Suspect]
     Dosage: UNK
  2. XANAX [Suspect]
     Dosage: 1.25MG DAILY

REACTIONS (2)
  - DRUG WITHDRAWAL SYNDROME [None]
  - PYREXIA [None]
